FAERS Safety Report 9383967 (Version 2)
Quarter: 2015Q3

REPORT INFORMATION
  Report Type: Report from Study
  Country: CA (occurrence: CA)
  Receive Date: 20130705
  Receipt Date: 20150824
  Transmission Date: 20151125
  Serious: Yes (Other)
  Sender: FDA-Public Use
  Company Number: CA-ROCHE-1243981

PATIENT
  Sex: Female
  Weight: 90.9 kg

DRUGS (20)
  1. METHYLPREDNISOLONE. [Concomitant]
     Active Substance: METHYLPREDNISOLONE
     Indication: PREMEDICATION
     Route: 042
     Dates: start: 20100413, end: 20110125
  2. DICLOFENAC [Concomitant]
     Active Substance: DICLOFENAC
  3. FOLIC ACID. [Concomitant]
     Active Substance: FOLIC ACID
  4. RITUXAN [Suspect]
     Active Substance: RITUXIMAB
     Indication: RHEUMATOID ARTHRITIS
     Route: 042
     Dates: start: 20100413, end: 20110125
  5. ACTEMRA [Suspect]
     Active Substance: TOCILIZUMAB
     Route: 042
     Dates: start: 20150721
  6. DIPHENHYDRAMINE HCL [Concomitant]
     Active Substance: DIPHENHYDRAMINE HYDROCHLORIDE
     Indication: PREMEDICATION
     Route: 048
     Dates: start: 20100413, end: 20110125
  7. NITRAZEPAM [Concomitant]
     Active Substance: NITRAZEPAM
  8. ACTEMRA [Suspect]
     Active Substance: TOCILIZUMAB
     Indication: RHEUMATOID ARTHRITIS
     Route: 042
     Dates: start: 20131001
  9. CELEBREX [Suspect]
     Active Substance: CELECOXIB
     Indication: ANALGESIC THERAPY
     Route: 065
  10. AMITRIPTYLINE [Concomitant]
     Active Substance: AMITRIPTYLINE
  11. MIRTAZAPINE. [Concomitant]
     Active Substance: MIRTAZAPINE
  12. LYRICA [Concomitant]
     Active Substance: PREGABALIN
  13. ACTONEL [Concomitant]
     Active Substance: RISEDRONATE SODIUM
  14. HYDROQUININE [Concomitant]
  15. PREDNISONE. [Concomitant]
     Active Substance: PREDNISONE
  16. METHOTREXATE [Concomitant]
     Active Substance: METHOTREXATE
  17. PANTOLOC [Concomitant]
     Active Substance: PANTOPRAZOLE SODIUM
  18. LORAZEPAM. [Concomitant]
     Active Substance: LORAZEPAM
  19. MORPHINE [Concomitant]
     Active Substance: MORPHINE
  20. ACETAMINOPHEN. [Concomitant]
     Active Substance: ACETAMINOPHEN
     Indication: PREMEDICATION
     Route: 048
     Dates: start: 20100413, end: 20110125

REACTIONS (7)
  - Vomiting [Unknown]
  - Drug ineffective [Unknown]
  - Intervertebral disc disorder [Not Recovered/Not Resolved]
  - Joint swelling [Unknown]
  - Nausea [Unknown]
  - Back pain [Not Recovered/Not Resolved]
  - Weight decreased [Unknown]
